FAERS Safety Report 5441666-7 (Version None)
Quarter: 2007Q3

REPORT INFORMATION
  Report Type: 
  Country: None (occurrence: None)
  Receive Date: 20070904
  Receipt Date: 20070830
  Transmission Date: 20080115
  Serious: Yes (Other)
  Sender: FDA-Public Use
  Company Number: GB-BAYER-200710917BNE

PATIENT
  Age: 9 Year
  Sex: Female
  Weight: 38 kg

DRUGS (8)
  1. CIPROFLOXACIN [Suspect]
     Route: 048
     Dates: start: 20070401
  2. CEPHALEXIN [Concomitant]
     Route: 048
  3. AMOXICILLIN + CLAVULANATE POTASSIUM [Concomitant]
     Dosage: TOTAL DAILY DOSE: 15 ML
     Route: 048
  4. LEVEMIR [Concomitant]
     Indication: TYPE 1 DIABETES MELLITUS
     Route: 058
     Dates: start: 20030101
  5. MIXTARD HUMAN 70/30 [Concomitant]
     Indication: TYPE 1 DIABETES MELLITUS
     Route: 058
     Dates: start: 20030101
  6. MOVICOL [Concomitant]
     Route: 048
  7. NITROFURANTOIN [Concomitant]
     Route: 048
  8. NOVORAPID [Concomitant]
     Indication: TYPE 1 DIABETES MELLITUS
     Dates: start: 20030101

REACTIONS (1)
  - HYPERGLYCAEMIA [None]
